FAERS Safety Report 8495553-0 (Version None)
Quarter: 2012Q3

REPORT INFORMATION
  Report Type: 
  Country: None (occurrence: None)
  Receive Date: 20120709
  Receipt Date: 20120622
  Transmission Date: 20120928
  Serious: Yes (Hospitalization)
  Sender: FDA-Public Use
  Company Number: US-MERCK-2012SP035459

PATIENT

DRUGS (3)
  1. PEGASYS [Suspect]
     Indication: HEPATITIS C
  2. VICTRELIS [Suspect]
     Indication: HEPATITIS C
     Dosage: 800 MG, Q8H
     Route: 048
     Dates: start: 20120521, end: 20120611
  3. MK-8908 [Suspect]
     Indication: PRODUCT USED FOR UNKNOWN INDICATION

REACTIONS (3)
  - BLOOD COUNT ABNORMAL [None]
  - ABDOMINAL INFECTION [None]
  - RENAL IMPAIRMENT [None]
